FAERS Safety Report 13458069 (Version 2)
Quarter: 2017Q2

REPORT INFORMATION
  Report Type: Report from Study
  Country: CL (occurrence: CL)
  Receive Date: 20170419
  Receipt Date: 20170428
  Transmission Date: 20170830
  Serious: Yes (Hospitalization)
  Sender: FDA-Public Use
  Company Number: CL-EMD SERONO-E2B_80065164

PATIENT
  Age: 31 Year
  Sex: Female

DRUGS (1)
  1. REBIF [Suspect]
     Active Substance: INTERFERON BETA-1A
     Indication: MULTIPLE SCLEROSIS
     Route: 058
     Dates: start: 20170227

REACTIONS (3)
  - Incorrect product storage [Unknown]
  - Multiple sclerosis relapse [Unknown]
  - Ill-defined disorder [Unknown]

NARRATIVE: CASE EVENT DATE: 201704
